FAERS Safety Report 6926395-2 (Version None)
Quarter: 2010Q3

REPORT INFORMATION
  Report Type: 
  Country: None (occurrence: None)
  Receive Date: 20100816
  Receipt Date: 20100715
  Transmission Date: 20110219
  Serious: Yes (Hospitalization)
  Sender: FDA-Public Use
  Company Number: US-BAYER-201020492NA

PATIENT
  Age: 27 Year
  Sex: Female
  Weight: 60 kg

DRUGS (15)
  1. YASMIN [Suspect]
     Indication: CONTRACEPTION
     Route: 048
     Dates: start: 20060901, end: 20090901
  2. DROSPIRENONE AND EHTINYL ESTRADIOL [Suspect]
     Indication: CONTRACEPTION
     Dates: start: 20060901, end: 20090901
  3. ORTHO EVRA [Concomitant]
     Route: 062
     Dates: start: 20050101
  4. PROVENTIL [Concomitant]
  5. PROAIR HFA [Concomitant]
     Indication: ASTHMA
     Dates: start: 19940101
  6. ADVAIR DISKUS 100/50 [Concomitant]
     Indication: ASTHMA
     Dates: start: 19940101
  7. PRENATAL VITAMINS [Concomitant]
     Dosage: OVER THE COUNTER. DAILY
  8. TEGRETOL [Concomitant]
  9. DILANTIN [Concomitant]
     Dates: start: 20070506
  10. ZONIG [Concomitant]
     Dates: start: 20080701
  11. MOTRIN [Concomitant]
  12. ALEVE (CAPLET) [Concomitant]
     Dates: start: 20000101
  13. PROPYLTHIOURACIL [Concomitant]
     Dates: start: 20050101, end: 20070101
  14. ACETAMINOPHEN [Concomitant]
  15. ALBUTEROL [Concomitant]

REACTIONS (3)
  - ABDOMINAL PAIN [None]
  - CHEST PAIN [None]
  - CHOLELITHIASIS [None]
